FAERS Safety Report 8947763 (Version 1)
Quarter: 2012Q4

REPORT INFORMATION
  Report Type: 
  Country: FR (occurrence: FR)
  Receive Date: 20121204
  Receipt Date: 20121204
  Transmission Date: 20130627
  Serious: Yes (Death, Life-Threatening, Hospitalization, Other)
  Sender: FDA-Public Use
  Company Number: PHHY2012FR110112

PATIENT
  Age: 86 Year
  Sex: Female

DRUGS (10)
  1. EUCREAS [Suspect]
     Indication: TYPE 2 DIABETES MELLITUS
     Dosage: 1 DF(1000 mg metf and 50 mg vilda), BID
     Route: 048
  2. METFORMIN [Suspect]
     Indication: TYPE 2 DIABETES MELLITUS
     Dosage: 1000 mg, QD
     Route: 048
  3. VERAPAMIL [Concomitant]
     Dosage: 240 mg, UNK
  4. METEOSPASMIL [Concomitant]
     Dosage: 2000 mg, UNK
  5. SERETIDE [Concomitant]
  6. DOLIPRANE [Concomitant]
  7. AERIUS [Concomitant]
  8. SIMVASTATINE [Concomitant]
  9. ALLOPURINOL [Concomitant]
     Dosage: 20 mg, UNK
  10. MOLSIDOMINE [Concomitant]
     Dosage: 4 mg, UNK

REACTIONS (13)
  - Renal failure [Fatal]
  - Lactic acidosis [Fatal]
  - Overdose [Fatal]
  - Hypotension [Unknown]
  - Tachypnoea [Unknown]
  - Arrhythmia [Unknown]
  - Atrial fibrillation [Unknown]
  - Gastroenteritis [Unknown]
  - Diarrhoea [Unknown]
  - Dehydration [Unknown]
  - Decreased appetite [Unknown]
  - Malaise [Unknown]
  - General physical health deterioration [Unknown]
